FAERS Safety Report 6818336-3 (Version None)
Quarter: 2010Q3

REPORT INFORMATION
  Report Type: 
  Country: None (occurrence: None)
  Receive Date: 20100706
  Receipt Date: 20071029
  Transmission Date: 20110219
  Serious: No
  Sender: FDA-Public Use
  Company Number: US-PFIZER INC-2007090957

PATIENT
  Sex: Female

DRUGS (4)
  1. ZMAX [Suspect]
     Route: 048
     Dates: start: 20071026
  2. KETEK [Concomitant]
  3. LEVAQUIN [Concomitant]
  4. ALL OTHER THERAPEUTIC PRODUCTS [Concomitant]

REACTIONS (1)
  - INAPPROPRIATE SCHEDULE OF DRUG ADMINISTRATION [None]
